FAERS Safety Report 9481947 (Version 2)
Quarter: 2013Q4

REPORT INFORMATION
  Report Type: Spontaneous
  Country: US (occurrence: US)
  Receive Date: 20130828
  Receipt Date: 20131008
  Transmission Date: 20140711
  Serious: No
  Sender: FDA-Public Use
  Company Number: US-PFIZER INC-2013246974

PATIENT
  Age: 59 Year
  Sex: Female
  Weight: 154 kg

DRUGS (3)
  1. GABAPENTIN [Suspect]
     Indication: NERVE INJURY
     Dosage: UNK
     Dates: start: 2013, end: 2013
  2. GABAPENTIN [Suspect]
     Indication: NEURALGIA
  3. LYRICA [Suspect]
     Indication: NEUROPATHY PERIPHERAL
     Dosage: 75 MG, 2X/DAY
     Route: 048
     Dates: start: 201303

REACTIONS (3)
  - Drug ineffective [Unknown]
  - Dizziness [Unknown]
  - Blood glucose increased [Unknown]
